FAERS Safety Report 7227405-8 (Version None)
Quarter: 2011Q1

REPORT INFORMATION
  Report Type: 
  Country: None (occurrence: None)
  Receive Date: 20110111
  Receipt Date: 20110111
  Transmission Date: 20110831
  Serious: Yes (Hospitalization)
  Sender: FDA-Public Use
  Company Number: None

PATIENT
  Sex: Female
  Weight: 54.4316 kg

DRUGS (1)
  1. ZOLEDRONIC ACID [Suspect]
     Indication: OSTEOPOROSIS
     Dosage: ONE INFUSION A YEAR

REACTIONS (9)
  - VERTIGO [None]
  - MIGRAINE [None]
  - PYREXIA [None]
  - BONE PAIN [None]
  - MYALGIA [None]
  - VOMITING [None]
  - CEREBROVASCULAR ACCIDENT [None]
  - FALL [None]
  - DEAFNESS TRANSITORY [None]
